FAERS Safety Report 12820196 (Version 2)
Quarter: 2016Q4

REPORT INFORMATION
  Report Type: Spontaneous
  Country: FR (occurrence: FR)
  Receive Date: 20161006
  Receipt Date: 20161102
  Transmission Date: 20170207
  Serious: Yes (Hospitalization)
  Sender: FDA-Public Use
  Company Number: PHHY2016FR137790

PATIENT
  Sex: Male
  Weight: 94 kg

DRUGS (17)
  1. TITANOREINE                        /01726401/ [Concomitant]
     Indication: HAEMORRHOIDS
     Route: 054
  2. STALEVO [Suspect]
     Active Substance: CARBIDOPA\ENTACAPONE\LEVODOPA
     Indication: PARKINSON^S DISEASE
     Dosage: 1 DF (75/18.5/200 MG), 5QD
     Route: 048
  3. MADOPAR [Suspect]
     Active Substance: BENSERAZIDE HYDROCHLORIDE\LEVODOPA
     Indication: PARKINSON^S DISEASE
     Dosage: 1 DF, QD
     Route: 048
  4. AZILECT [Suspect]
     Active Substance: RASAGILINE MESYLATE
     Indication: PARKINSON^S DISEASE
     Dosage: 1 DF, QD
     Route: 048
  5. RIVOTRIL [Suspect]
     Active Substance: CLONAZEPAM
     Indication: AGITATION
     Dosage: 0.5 DF, QD
     Route: 048
  6. RIVASTIGMINE MYLAN//RIVASTIGMINE [Suspect]
     Active Substance: RIVASTIGMINE
     Indication: PARKINSON^S DISEASE
     Dosage: 1 DF (4.6 MG PER 24 HOURS), QD
     Route: 062
  7. DIFFU K [Concomitant]
     Active Substance: POTASSIUM CHLORIDE
     Indication: HYPOKALAEMIA
     Dosage: 2 DF, QD
     Route: 048
  8. CLOZAPINE. [Suspect]
     Active Substance: CLOZAPINE
     Indication: PARKINSON^S DISEASE
     Dosage: 1.5 DF, QD
     Route: 048
     Dates: end: 20160916
  9. LANSOPRAZOL MYLAN [Concomitant]
     Active Substance: LANSOPRAZOLE
     Indication: GASTROOESOPHAGEAL REFLUX DISEASE
     Dosage: 1 DF, QD
     Route: 048
  10. TERBUTALINE ARROW [Concomitant]
     Active Substance: TERBUTALINE
     Indication: CHRONIC OBSTRUCTIVE PULMONARY DISEASE
     Dosage: 5 MG/2 ML
     Route: 055
  11. XARELTO [Concomitant]
     Active Substance: RIVAROXABAN
     Indication: PHLEBITIS
     Dosage: 1 DF, QD
     Route: 048
  12. ATROPINE FAURE [Concomitant]
     Indication: CATARACT
     Dosage: 1 %, UNK
     Route: 047
  13. MOVICOL [Concomitant]
     Active Substance: POLYETHYLENE GLYCOL 3350\POTASSIUM CHLORIDE\SODIUM BICARBONATE\SODIUM CHLORIDE
     Indication: CONSTIPATION
     Dosage: 2 DF, QD
     Route: 048
  14. MIANSERINE ARROW [Suspect]
     Active Substance: MIANSERIN HYDROCHLORIDE
     Indication: DEPRESSION
     Dosage: 1 DF, QD
     Route: 048
     Dates: start: 20160913
  15. APOKINON [Suspect]
     Active Substance: APOMORPHINE
     Indication: PARKINSON^S DISEASE
     Dosage: 150 MG, QD
     Route: 058
  16. PYOSTACINE [Concomitant]
     Active Substance: PRISTINAMYCIN
     Indication: ERYSIPELAS
     Dosage: 2 DF, TID
     Route: 048
     Dates: start: 20160912, end: 20160919
  17. CEFTRIAXONE PANPHARMA [Concomitant]
     Active Substance: CEFTRIAXONE
     Indication: LUNG INFECTION
     Dosage: 2 DF, QD
     Route: 042

REACTIONS (1)
  - Neuroleptic malignant syndrome [Recovered/Resolved]
